FAERS Safety Report 14776503 (Version 1)
Quarter: 2018Q2

REPORT INFORMATION
  Report Type: Spontaneous
  Country: FR (occurrence: FR)
  Receive Date: 20180418
  Receipt Date: 20180418
  Transmission Date: 20180711
  Serious: Yes (Hospitalization)
  Sender: FDA-Public Use
  Company Number: FR-TEVA-2018-FR-882487

PATIENT
  Age: 70 Year
  Sex: Male
  Weight: 66.6 kg

DRUGS (10)
  1. JANUVIA 100 MG, COATED TABLET [Concomitant]
     Indication: DIABETES MELLITUS
     Dosage: 1 DOSAGE FORMS DAILY;
     Route: 048
  2. ENALAPRIL (MALEATE D^) [Suspect]
     Active Substance: ENALAPRIL MALEATE
     Indication: HYPERTENSION
     Dosage: 20 MILLIGRAM DAILY;
     Route: 048
  3. TERALITHE [Suspect]
     Active Substance: LITHIUM CARBONATE
     Indication: BIPOLAR I DISORDER
     Dosage: 2 DOSAGE FORMS DAILY;
     Route: 048
  4. TERCIAN 50 MG/5 ML, INJECTABLE BULB SOLUTION [Concomitant]
     Indication: PSYCHOTIC DISORDER
     Dosage: 20 MILLIGRAM DAILY;  50 MG/5 ML, INJECTABLE BULB SOLUTION
     Route: 048
  5. ARTANE 2 MG, COMPRESSED [Concomitant]
     Indication: EXTRAPYRAMIDAL DISORDER
     Dosage: 3 DOSAGE FORMS DAILY;
     Route: 048
  6. METFORMINE ARROW 850 MG, COATED TABLET [Concomitant]
     Indication: DIABETES MELLITUS
     Dosage: 2 DOSAGE FORMS DAILY;
     Route: 048
  7. TERCIAN 25 MG, CAPSULE [Concomitant]
     Indication: PSYCHOTIC DISORDER
     Dosage: 1 DOSAGE FORMS DAILY;
     Route: 048
  8. ZYMAD 200 000 UI, ORAL SOLUTION IN A LIGHT BULB [Concomitant]
     Dosage: 200 000 UI, ORAL SOLUTION IN A LIGHT BULB
     Route: 048
  9. ISOPHANE INSULIN [Concomitant]
     Active Substance: INSULIN NOS
     Indication: DIABETES MELLITUS
     Route: 058
  10. EFFERALGANMED 500 MG, COMPRESSED [Concomitant]
     Route: 048

REACTIONS (2)
  - Acute kidney injury [Recovered/Resolved]
  - Nephropathy [Recovering/Resolving]
